FAERS Safety Report 25945571 (Version 1)
Quarter: 2025Q4

REPORT INFORMATION
  Report Type: Spontaneous
  Country: CN (occurrence: CN)
  Receive Date: 20251021
  Receipt Date: 20251021
  Transmission Date: 20260117
  Serious: Yes (Hospitalization)
  Sender: PFIZER
  Company Number: CN-PFIZER INC-PV202500123021

PATIENT
  Age: 77 Year
  Sex: Male
  Weight: 65 kg

DRUGS (1)
  1. LINEZOLID [Suspect]
     Active Substance: LINEZOLID
     Indication: Anti-infective therapy
     Dosage: 0.6 G, 2X/DAY
     Route: 041
     Dates: start: 20251005, end: 20251007

REACTIONS (6)
  - Oedema peripheral [Recovering/Resolving]
  - Muscular weakness [Recovering/Resolving]
  - Peripheral swelling [Recovering/Resolving]
  - Pain in extremity [Recovering/Resolving]
  - Joint swelling [Recovering/Resolving]
  - Limb discomfort [Recovering/Resolving]

NARRATIVE: CASE EVENT DATE: 20251001
